FAERS Safety Report 16362713 (Version 1)
Quarter: 2019Q2

REPORT INFORMATION
  Report Type: Spontaneous
  Country: GB (occurrence: GB)
  Receive Date: 20190528
  Receipt Date: 20190528
  Transmission Date: 20190711
  Serious: Yes (Hospitalization)
  Sender: FDA-Public Use
  Company Number: GB-MYLANLABS-2019M1049057

PATIENT
  Age: 82 Year
  Sex: Female

DRUGS (2)
  1. ALOGLIPTIN. [Suspect]
     Active Substance: ALOGLIPTIN
     Indication: PRODUCT USED FOR UNKNOWN INDICATION
     Dosage: REDUCED TO 12.5MG DURING ADMISSION.
     Route: 048
  2. PIOGLITAZONE. [Suspect]
     Active Substance: PIOGLITAZONE
     Indication: PRODUCT USED FOR UNKNOWN INDICATION
     Dosage: 30 MILLIGRAM, QD
     Route: 060
     Dates: end: 20180901

REACTIONS (3)
  - Acute coronary syndrome [Recovered/Resolved with Sequelae]
  - Acute myocardial infarction [Recovered/Resolved with Sequelae]
  - Sinus tachycardia [Recovered/Resolved with Sequelae]
